FAERS Safety Report 16163588 (Version 1)
Quarter: 2019Q2

REPORT INFORMATION
  Report Type: Spontaneous
  Country: US (occurrence: US)
  Receive Date: 20190304
  Receipt Date: 20190304
  Transmission Date: 20190711
  Serious: No
  Sender: FDA-Public Use
  Company Number: None

PATIENT
  Age: 67 Year
  Sex: Female
  Weight: 100.7 kg

DRUGS (2)
  1. TALTZ [Suspect]
     Active Substance: IXEKIZUMAB
     Indication: PSORIASIS
     Dosage: ?          OTHER FREQUENCY:AT WEEK 12 THEN 4 ;?
     Route: 058
     Dates: start: 201808
  2. TALTZ [Suspect]
     Active Substance: IXEKIZUMAB
     Indication: PSORIATIC ARTHROPATHY
     Dosage: ?          OTHER FREQUENCY:AT WEEK 12 THEN 4 ;?
     Route: 058
     Dates: start: 201808

REACTIONS (5)
  - Pyrexia [None]
  - Therapy cessation [None]
  - Fatigue [None]
  - Feeling abnormal [None]
  - Hypertension [None]
